FAERS Safety Report 7291604-X (Version None)
Quarter: 2011Q1

REPORT INFORMATION
  Report Type: 
  Country: None (occurrence: None)
  Receive Date: 20110214
  Receipt Date: 20110131
  Transmission Date: 20110831
  Serious: Yes (Death, Life-Threatening, Hospitalization, Other)
  Sender: FDA-Public Use
  Company Number: US-CELGENEUS-163-21880-10113189

PATIENT
  Sex: Male
  Weight: 73.8 kg

DRUGS (21)
  1. METFORMIN [Concomitant]
     Route: 048
  2. FLAGYL [Concomitant]
     Route: 051
  3. MICAFUNGIN [Concomitant]
     Route: 051
  4. VANCOMYCIN HCL [Concomitant]
     Route: 051
  5. ALBUMIN (HUMAN) [Concomitant]
     Route: 051
  6. REVLIMID [Suspect]
     Route: 048
     Dates: start: 20100223, end: 20100921
  7. ACYCLOVIR [Concomitant]
     Route: 048
  8. CEFTAZIDIME [Concomitant]
     Route: 051
  9. PENICILLIN G POTASSIUM [Concomitant]
     Route: 051
  10. CALCIUM CHLORIDE [Concomitant]
     Route: 051
  11. ASPIRIN [Concomitant]
     Route: 048
  12. DOXYCYCLINE HYCLATE [Concomitant]
     Route: 051
  13. AMBIEN [Concomitant]
     Route: 048
  14. CARVEDILOL [Concomitant]
     Route: 048
  15. FAMOTIDINE [Concomitant]
     Route: 051
  16. MAGNESIUM SULFATE [Concomitant]
     Route: 051
  17. RITUXAN [Suspect]
     Route: 065
     Dates: start: 20100406, end: 20100914
  18. CLINDAMYCIN PHOSPHATE [Concomitant]
     Route: 051
  19. AMIODARONE [Concomitant]
     Route: 051
  20. AMIODARONE [Concomitant]
     Dosage: 0.5 MG/MIN ID D5W CONTINUOUS
     Route: 051
  21. AMIODARONE [Concomitant]
     Dosage: 1MG/MIN ID D5W X6 H
     Route: 051

REACTIONS (4)
  - SEPTIC SHOCK [None]
  - VASCULITIS NECROTISING [None]
  - MULTI-ORGAN FAILURE [None]
  - PNEUMONIA [None]
